FAERS Safety Report 7450644-8 (Version None)
Quarter: 2011Q2

REPORT INFORMATION
  Report Type: 
  Country: None (occurrence: None)
  Receive Date: 20110502
  Receipt Date: 20110412
  Transmission Date: 20111010
  Serious: Yes (Other)
  Sender: FDA-Public Use
  Company Number: US-SANOFI-AVENTIS-2010SA051076

PATIENT
  Sex: Female

DRUGS (2)
  1. SOLOSTAR [Suspect]
     Route: 058
  2. LANTUS [Suspect]
     Route: 058

REACTIONS (5)
  - DEVICE BREAKAGE [None]
  - PRODUCT QUALITY ISSUE [None]
  - DEVICE OCCLUSION [None]
  - SYRINGE ISSUE [None]
  - NEEDLE ISSUE [None]
